FAERS Safety Report 6213683-0 (Version None)
Quarter: 2009Q2

REPORT INFORMATION
  Report Type: 
  Country: None (occurrence: None)
  Receive Date: 20090601
  Receipt Date: 20090520
  Transmission Date: 20091009
  Serious: Yes (Hospitalization)
  Sender: FDA-Public Use
  Company Number: 2009AP002140

PATIENT
  Age: 76 Year
  Sex: Female

DRUGS (3)
  1. DICLOFENAC SODIUM [Suspect]
     Dosage: 75 MG;BID
  2. LITHIUM CARBONATE [Suspect]
     Dosage: 1000 MG; QD; 400 MG; QD
  3. FLUVOXAMINE MALEATE [Concomitant]

REACTIONS (7)
  - CEREBELLAR SYNDROME [None]
  - DELIRIUM [None]
  - DISORIENTATION [None]
  - DRUG INTERACTION [None]
  - DRUG LEVEL ABOVE THERAPEUTIC [None]
  - REFUSAL OF TREATMENT BY PATIENT [None]
  - THERAPEUTIC AGENT TOXICITY [None]
